FAERS Safety Report 16356340 (Version 1)
Quarter: 2019Q2

REPORT INFORMATION
  Report Type: Spontaneous
  Country: US (occurrence: US)
  Receive Date: 20190527
  Receipt Date: 20190527
  Transmission Date: 20190711
  Serious: No
  Sender: FDA-Public Use
  Company Number: US-TEVA-2019-US-1052749

PATIENT
  Age: 51 Year
  Sex: Female

DRUGS (1)
  1. MEDROXYPROGESTERONE ACETATE. [Suspect]
     Active Substance: MEDROXYPROGESTERONE ACETATE
     Indication: UTERINE LEIOMYOMA
     Dosage: 10 MILLIGRAM DAILY; FOR 3 OUT OF 4 WEEKS EVERY MONTH
     Route: 065

REACTIONS (1)
  - Muscular weakness [Unknown]
